FAERS Safety Report 14026971 (Version 2)
Quarter: 2017Q4

REPORT INFORMATION
  Report Type: Spontaneous
  Country: JP (occurrence: JP)
  Receive Date: 20170929
  Receipt Date: 20171009
  Transmission Date: 20180321
  Serious: No
  Sender: FDA-Public Use
  Company Number: JP-B.I. PHARMACEUTICALS,INC./RIDGEFIELD-2017-NB-005596

PATIENT
  Age: 81 Year
  Sex: Female

DRUGS (6)
  1. HYALEIN [Concomitant]
     Active Substance: HYALURONATE SODIUM
     Indication: DRY EYE
     Route: 065
  2. DONEPEZIL HYDROCHLORIDE. [Concomitant]
     Active Substance: DONEPEZIL HYDROCHLORIDE
     Indication: DEMENTIA
     Route: 048
     Dates: start: 20150202
  3. TRUSOPT [Concomitant]
     Active Substance: DORZOLAMIDE HYDROCHLORIDE
     Indication: GLAUCOMA
     Route: 065
  4. RESCULA [Concomitant]
     Active Substance: UNOPROSTONE ISOPROPYL
     Indication: GLAUCOMA
     Route: 065
  5. TRAZENTA [Suspect]
     Active Substance: LINAGLIPTIN
     Indication: DIABETES MELLITUS
     Route: 048
     Dates: start: 20170926
  6. ALPHAGAN P [Concomitant]
     Active Substance: BRIMONIDINE TARTRATE
     Indication: GLAUCOMA
     Route: 065

REACTIONS (1)
  - Aggression [Recovered/Resolved]

NARRATIVE: CASE EVENT DATE: 20170928
